FAERS Safety Report 18354675 (Version 2)
Quarter: 2020Q4

REPORT INFORMATION
  Report Type: Spontaneous
  Country: AR (occurrence: AR)
  Receive Date: 20201007
  Receipt Date: 20201008
  Transmission Date: 20210114
  Serious: Yes (Other)
  Sender: FDA-Public Use
  Company Number: AR-AMGEN-ARGSP2020161547

PATIENT
  Age: 66 Year
  Sex: Female

DRUGS (1)
  1. ENBREL [Suspect]
     Active Substance: ETANERCEPT
     Indication: RHEUMATOID ARTHRITIS
     Dosage: 50 MG, WEEKLY
     Route: 065
     Dates: start: 20190502

REACTIONS (9)
  - Sciatic nerve injury [Unknown]
  - Nerve injury [Unknown]
  - Tendon disorder [Unknown]
  - Spinal cord disorder [Unknown]
  - Carpal tunnel syndrome [Not Recovered/Not Resolved]
  - Osteoarthritis [Unknown]
  - Joint destruction [Unknown]
  - Discomfort [Unknown]
  - Bone disorder [Unknown]

NARRATIVE: CASE EVENT DATE: 202002
